FAERS Safety Report 10102166 (Version 1)
Quarter: 2014Q2

REPORT INFORMATION
  Report Type: Spontaneous
  Country: US (occurrence: US)
  Receive Date: 20140424
  Receipt Date: 20140424
  Transmission Date: 20141212
  Serious: No
  Sender: FDA-Public Use
  Company Number: US-PFIZER INC-2014111748

PATIENT
  Age: 79 Year
  Sex: Female

DRUGS (5)
  1. LIPITOR [Suspect]
     Dosage: UNK
  2. METOPROLOL TARTRATE [Concomitant]
     Dosage: 50 MG, 2X/DAY
  3. ESTAZOLAM [Concomitant]
     Dosage: 1 MG, UNK
  4. CALCIUM + VIT D [Concomitant]
     Dosage: UNK
  5. VITAMIN D [Concomitant]
     Dosage: 50K, ONCE A MONTH

REACTIONS (4)
  - Bone pain [Unknown]
  - Arthralgia [Unknown]
  - Vertebral osteophyte [Unknown]
  - Scoliosis [Unknown]
